FAERS Safety Report 5500178-2 (Version None)
Quarter: 2007Q4

REPORT INFORMATION
  Report Type: 
  Country: None (occurrence: None)
  Receive Date: 20071025
  Receipt Date: 20071020
  Transmission Date: 20080405
  Serious: Yes (Other)
  Sender: FDA-Public Use
  Company Number: 2007BI019505

PATIENT
  Age: 24 Year
  Sex: Female

DRUGS (3)
  1. NATALIZUMAB                          (NATALIZUMAB) [Suspect]
     Indication: MULTIPLE SCLEROSIS
     Dosage: 300 MG; ; IV
     Route: 042
     Dates: start: 20061219, end: 20070523
  2. ACETAMINOPHEN [Concomitant]
  3. COPAXONE [Concomitant]

REACTIONS (3)
  - ABORTION SPONTANEOUS [None]
  - DRUG EXPOSURE DURING PREGNANCY [None]
  - PREGNANCY [None]
